FAERS Safety Report 9637265 (Version 1)
Quarter: 2013Q4

REPORT INFORMATION
  Report Type: Spontaneous
  Country: US (occurrence: US)
  Receive Date: 20131022
  Receipt Date: 20131022
  Transmission Date: 20140711
  Serious: No
  Sender: FDA-Public Use
  Company Number: US-BIOGENIDEC-2013BI098941

PATIENT
  Sex: Female

DRUGS (1)
  1. TYSABRI [Suspect]
     Indication: MULTIPLE SCLEROSIS
     Route: 042
     Dates: start: 20130617

REACTIONS (12)
  - Agitation [Recovered/Resolved]
  - Depressed mood [Unknown]
  - Crying [Unknown]
  - Stress [Unknown]
  - Pain in extremity [Unknown]
  - Adnexa uteri pain [Unknown]
  - Balance disorder [Recovered/Resolved]
  - Emotional distress [Recovered/Resolved]
  - Malaise [Unknown]
  - Fatigue [Unknown]
  - Asthenia [Unknown]
  - Sinus headache [Recovered/Resolved]
